FAERS Safety Report 18760508 (Version 1)
Quarter: 2021Q1

REPORT INFORMATION
  Report Type: Spontaneous
  Country: US (occurrence: US)
  Receive Date: 20210119
  Receipt Date: 20210119
  Transmission Date: 20210419
  Serious: No
  Sender: FDA-Public Use
  Company Number: US-ROCHE-2483212

PATIENT
  Age: 68 Year
  Sex: Male
  Weight: 69.01 kg

DRUGS (1)
  1. RITUXAN [Suspect]
     Active Substance: RITUXIMAB
     Indication: WALDENSTROM^S MACROGLOBULINAEMIA
     Dosage: 4 INFUSIONS.
     Route: 042
     Dates: start: 20190107, end: 20190128

REACTIONS (4)
  - Erythema [Unknown]
  - Intentional product use issue [Unknown]
  - Off label use [Unknown]
  - Pruritus [Not Recovered/Not Resolved]

NARRATIVE: CASE EVENT DATE: 20190107
